FAERS Safety Report 5404066-1 (Version None)
Quarter: 2007Q3

REPORT INFORMATION
  Report Type: 
  Country: None (occurrence: None)
  Receive Date: 20070731
  Receipt Date: 20070718
  Transmission Date: 20080115
  Serious: Yes (Disabling)
  Sender: FDA-Public Use
  Company Number: GXKR2007GB06236

PATIENT
  Age: 87 Year
  Sex: Male
  Weight: 70 kg

DRUGS (6)
  1. DOXYCYCLINE [Suspect]
     Dosage: ORAL
     Route: 048
     Dates: start: 20070401, end: 20070601
  2. FUSIDIC ACID [Suspect]
     Indication: OSTEOMYELITIS
     Dosage: ORAL
     Route: 048
     Dates: start: 20070101, end: 20070601
  3. TEICOPLANIN(TEICOPLANIN) [Suspect]
     Indication: OSTEOMYELITIS
     Dosage: 400 G, INTRAVENOUS
     Route: 042
     Dates: start: 20070101, end: 20070201
  4. IBUPROFEN [Concomitant]
  5. ACETAMINOPHEN [Concomitant]
  6. TRAMADOL HCL [Concomitant]

REACTIONS (2)
  - CONFUSIONAL STATE [None]
  - HALLUCINATION, VISUAL [None]
